FAERS Safety Report 20514887 (Version 3)
Quarter: 2022Q3

REPORT INFORMATION
  Report Type: Spontaneous
  Country: US (occurrence: US)
  Receive Date: 20220224
  Receipt Date: 20220821
  Transmission Date: 20221027
  Serious: No
  Sender: FDA-Public Use
  Company Number: US-SA-SAC20220217000470

PATIENT
  Age: 46 Year
  Sex: Female

DRUGS (3)
  1. DUPIXENT [Suspect]
     Active Substance: DUPILUMAB
     Indication: Asthma
     Dosage: 300 MG, QOW
     Route: 058
     Dates: start: 20211208
  2. DUPIXENT [Suspect]
     Active Substance: DUPILUMAB
     Indication: Hidradenitis
  3. HUMIRA [Concomitant]
     Active Substance: ADALIMUMAB
     Dosage: UNK

REACTIONS (5)
  - Injection site rash [Unknown]
  - Hidradenitis [Not Recovered/Not Resolved]
  - Condition aggravated [Not Recovered/Not Resolved]
  - Asthma [Not Recovered/Not Resolved]
  - Product use in unapproved indication [Unknown]

NARRATIVE: CASE EVENT DATE: 20211208
